FAERS Safety Report 7968199-8 (Version None)
Quarter: 2011Q4

REPORT INFORMATION
  Report Type: 
  Country: None (occurrence: None)
  Receive Date: 20111209
  Receipt Date: 20111205
  Transmission Date: 20120403
  Serious: Yes (Death)
  Sender: FDA-Public Use
  Company Number: PHEH2011US02865

PATIENT
  Sex: Male

DRUGS (1)
  1. RECLAST [Suspect]
     Dosage: UNK UKN, UNK
     Route: 042

REACTIONS (2)
  - POST PROCEDURAL COMPLICATION [None]
  - GASTROINTESTINAL HAEMORRHAGE [None]
